FAERS Safety Report 14668157 (Version 2)
Quarter: 2018Q3

REPORT INFORMATION
  Report Type: Spontaneous
  Country: US (occurrence: US)
  Receive Date: 20180322
  Receipt Date: 20180704
  Transmission Date: 20181010
  Serious: Yes (Other)
  Sender: FDA-Public Use
  Company Number: US-ROCHE-2088160

PATIENT
  Age: 16 Year
  Sex: Male
  Weight: 71.28 kg

DRUGS (3)
  1. TAMIFLU [Suspect]
     Active Substance: OSELTAMIVIR PHOSPHATE
     Indication: INFLUENZA
     Dosage: TAB
     Route: 048
     Dates: start: 20180306, end: 20180308
  2. MOTRIN [Concomitant]
     Active Substance: IBUPROFEN
     Indication: INFLUENZA LIKE ILLNESS
     Dosage: PRN Q 6?8
     Route: 048
  3. TYLENOL [Concomitant]
     Active Substance: ACETAMINOPHEN
     Indication: PRODUCT USED FOR UNKNOWN INDICATION
     Dosage: UNKNOWN
     Route: 065

REACTIONS (8)
  - Pyrexia [Unknown]
  - Hypersensitivity [Unknown]
  - Vomiting [Unknown]
  - Disorientation [Unknown]
  - Syncope [Recovered/Resolved]
  - Fall [Unknown]
  - Drug ineffective [Unknown]
  - Loss of consciousness [Unknown]

NARRATIVE: CASE EVENT DATE: 20180307
